FAERS Safety Report 5766950-9 (Version None)
Quarter: 2008Q2

REPORT INFORMATION
  Report Type: 
  Country: None (occurrence: None)
  Receive Date: 20080519
  Receipt Date: 20070906
  Transmission Date: 20081010
  Serious: No
  Sender: FDA-Public Use
  Company Number: 2007BH007556

PATIENT
  Age: 3 Month
  Sex: Female

DRUGS (2)
  1. HEPARIN SODIUM [Suspect]
     Indication: DRUG USE FOR UNKNOWN INDICATION
     Dosage: IV
     Route: 042
     Dates: start: 20070807, end: 20070807
  2. DEXTROSE 10% [Suspect]
     Indication: DRUG USE FOR UNKNOWN INDICATION
     Dosage: IV
     Route: 042
     Dates: start: 20070807, end: 20070807

REACTIONS (2)
  - ACCIDENTAL OVERDOSE [None]
  - URINE OUTPUT INCREASED [None]
